FAERS Safety Report 18368894 (Version 2)
Quarter: 2020Q4

REPORT INFORMATION
  Report Type: Spontaneous
  Country: US (occurrence: US)
  Receive Date: 20201011
  Receipt Date: 20201118
  Transmission Date: 20210114
  Serious: No
  Sender: FDA-Public Use
  Company Number: US-ASTRAZENECA-2020SF22473

PATIENT
  Age: 24657 Day
  Sex: Male
  Weight: 97.5 kg

DRUGS (1)
  1. BYDUREON BCISE [Suspect]
     Active Substance: EXENATIDE
     Indication: TYPE 2 DIABETES MELLITUS
     Dosage: 2-3 YEARS AGO
     Route: 058

REACTIONS (8)
  - Needle issue [Unknown]
  - Hypoacusis [Unknown]
  - Drug dose omission by device [Unknown]
  - Visual impairment [Unknown]
  - Device issue [Unknown]
  - Urticaria [Recovering/Resolving]
  - Product administration error [Recovered/Resolved]
  - Device leakage [Unknown]

NARRATIVE: CASE EVENT DATE: 20200918
